FAERS Safety Report 25868277 (Version 1)
Quarter: 2025Q4

REPORT INFORMATION
  Report Type: Spontaneous
  Country: AE (occurrence: AE)
  Receive Date: 20251001
  Receipt Date: 20251001
  Transmission Date: 20260117
  Serious: Yes (Other)
  Sender: KARYOPHARM THERAPEUTICS
  Company Number: AE-KARYOPHARM-2025KPT100778

PATIENT

DRUGS (1)
  1. SELINEXOR [Suspect]
     Active Substance: SELINEXOR
     Indication: Plasma cell myeloma refractory
     Dosage: 60 UNK CYCLIC (DAY 1 TO DAY 8 OF A 35 DAY CYCLE)
     Route: 048

REACTIONS (2)
  - Plasmacytoma [Not Recovered/Not Resolved]
  - Pneumonia [Not Recovered/Not Resolved]
